FAERS Safety Report 4374172-1 (Version None)
Quarter: 2004Q2

REPORT INFORMATION
  Report Type: 
  Country: None (occurrence: None)
  Receive Date: 20040603
  Receipt Date: 20040519
  Transmission Date: 20050107
  Serious: Yes (Death)
  Sender: FDA-Public Use
  Company Number: 04USA0090 (0) 133

PATIENT
  Age: 70 Year
  Sex: Male

DRUGS (10)
  1. AGGRASTAT [Suspect]
     Indication: ELECTROCARDIOGRAM T WAVE INVERSION
     Dosage: 12.5 MG, INTRAVENOUS
     Route: 042
  2. ASPIRIN [Concomitant]
  3. CALCIUM CARBONATE (CALCIUM CARBONATE) [Concomitant]
  4. FUROSEMIDE [Concomitant]
  5. IBUPROFEN [Concomitant]
  6. INDOMETHACIN [Concomitant]
  7. METOPROLOL (METOPROLOL) [Concomitant]
  8. PREDNISONE TAB [Concomitant]
  9. SIMVASTATIN [Concomitant]
  10. SODIUM CHLORIDE 0.9% [Concomitant]

REACTIONS (12)
  - ABDOMINAL PAIN LOWER [None]
  - CATHETER SITE DISCHARGE [None]
  - ELECTROCARDIOGRAM T WAVE INVERSION [None]
  - FAECAL OCCULT BLOOD POSITIVE [None]
  - FAECES DISCOLOURED [None]
  - HAEMATOMA [None]
  - INFREQUENT BOWEL MOVEMENTS [None]
  - OVERDOSE [None]
  - PNEUMONIA ASPIRATION [None]
  - REFRACTION DISORDER [None]
  - RESPIRATORY DISTRESS [None]
  - VOMITING [None]
